FAERS Safety Report 23009759 (Version 2)
Quarter: 2023Q4

REPORT INFORMATION
  Report Type: Spontaneous
  Country: JP (occurrence: JP)
  Receive Date: 20230929
  Receipt Date: 20231005
  Transmission Date: 20240110
  Serious: Yes (Other)
  Sender: FDA-Public Use
  Company Number: JP-MSD-M2023-40665

PATIENT
  Age: 70 Year
  Sex: Female

DRUGS (1)
  1. LAGEVRIO [Suspect]
     Active Substance: MOLNUPIRAVIR
     Indication: COVID-19 treatment
     Dosage: 800 MILLIGRAM, BID
     Route: 048
     Dates: start: 202309

REACTIONS (9)
  - Choking [Recovered/Resolved]
  - Pharyngitis [Not Recovered/Not Resolved]
  - Tongue rough [Unknown]
  - Pruritus [Unknown]
  - Hypersensitivity [Unknown]
  - Urticaria [Unknown]
  - Wrong technique in product usage process [Unknown]
  - Product size issue [Unknown]
  - Product after taste [Unknown]

NARRATIVE: CASE EVENT DATE: 20230926
